FAERS Safety Report 9789744 (Version 2)
Quarter: 2014Q1

REPORT INFORMATION
  Report Type: Spontaneous
  Country: US (occurrence: US)
  Receive Date: 20131231
  Receipt Date: 20140124
  Transmission Date: 20141002
  Serious: No
  Sender: FDA-Public Use
  Company Number: US-PFIZER INC-2013373818

PATIENT
  Age: 45 Year
  Sex: Female
  Weight: 68 kg

DRUGS (4)
  1. LYRICA [Suspect]
     Indication: NEURALGIA
     Dosage: 50 MG, 3X/DAY
     Dates: start: 2012
  2. LYRICA [Suspect]
     Dosage: 100 MG, 3X/DAY
     Dates: end: 201312
  3. HUMULIN [Concomitant]
     Indication: DIABETES MELLITUS
     Dosage: UNK, 2X/DAY (50 IU IN THE MORNING AND 25 IU IN THE EVENING)
  4. LEVEMIR [Concomitant]
     Indication: DIABETES MELLITUS
     Dosage: 50 IU, 1X/DAY

REACTIONS (1)
  - Pain in extremity [Unknown]
